FAERS Safety Report 7096283-2 (Version None)
Quarter: 2010Q4

REPORT INFORMATION
  Report Type: 
  Country: None (occurrence: None)
  Receive Date: 20101111
  Receipt Date: 20101110
  Transmission Date: 20110411
  Serious: Yes (Hospitalization)
  Sender: FDA-Public Use
  Company Number: US-BRISTOL-MYERS SQUIBB COMPANY-15377344

PATIENT
  Sex: Female

DRUGS (3)
  1. ABILIFY [Suspect]
  2. CYMBALTA [Suspect]
     Indication: DEPRESSION
  3. SEROQUEL [Suspect]
     Indication: DEPRESSION

REACTIONS (2)
  - GASTRIC DILATATION [None]
  - JOINT SWELLING [None]
